FAERS Safety Report 19753842 (Version 7)
Quarter: 2022Q3

REPORT INFORMATION
  Report Type: Report from Study
  Country: US (occurrence: US)
  Receive Date: 20210827
  Receipt Date: 20220720
  Transmission Date: 20221027
  Serious: Yes (Disabling, Other)
  Sender: FDA-Public Use
  Company Number: US-NOVARTISTESTPH-NVSC2021US191427

PATIENT
  Sex: Male

DRUGS (2)
  1. ENTRESTO [Suspect]
     Active Substance: SACUBITRIL\VALSARTAN
     Indication: Product used for unknown indication
     Dosage: 1 DOSAGE FORM, BID (49/51 MG)
     Route: 048
     Dates: start: 20201101
  2. JARDIANCE [Suspect]
     Active Substance: EMPAGLIFLOZIN
     Indication: Product used for unknown indication
     Dosage: UNK
     Route: 065

REACTIONS (7)
  - Skin disorder [Not Recovered/Not Resolved]
  - Rash [Recovering/Resolving]
  - Sticky skin [Not Recovered/Not Resolved]
  - Thrombosis [Recovered/Resolved]
  - Glycosylated haemoglobin increased [Unknown]
  - Dysuria [Recovered/Resolved]
  - Urine abnormality [Recovered/Resolved]
